FAERS Safety Report 4484049-9 (Version None)
Quarter: 2004Q4

REPORT INFORMATION
  Report Type: 
  Country: None (occurrence: None)
  Receive Date: 20041025
  Receipt Date: 20030929
  Transmission Date: 20050328
  Serious: Yes (Hospitalization, Disabling)
  Sender: FDA-Public Use
  Company Number: US-MERCK-0310USA00083

PATIENT
  Age: 32 Year
  Sex: Male
  Weight: 114 kg

DRUGS (25)
  1. VIOXX [Suspect]
     Indication: PAIN
     Route: 048
     Dates: start: 20011217, end: 20020101
  2. NORVASC [Concomitant]
     Route: 065
     Dates: start: 19990101, end: 20010101
  3. ZOCOR [Concomitant]
     Route: 048
     Dates: start: 20020101
  4. DIGITEK [Concomitant]
     Route: 065
     Dates: start: 20020101
  5. COREG [Concomitant]
     Route: 065
     Dates: start: 20011211
  6. CLONIDINE [Concomitant]
     Route: 065
  7. CLONIDINE [Concomitant]
     Route: 048
     Dates: start: 20020101
  8. LISINOPRIL [Concomitant]
     Route: 065
  9. SPIRONOLACTONE [Concomitant]
     Route: 065
  10. NEXIUM [Concomitant]
     Route: 065
  11. REGLAN [Concomitant]
     Route: 065
  12. MINOXIDIL [Concomitant]
     Route: 065
     Dates: start: 20020118
  13. MINOXIDIL [Concomitant]
     Route: 065
     Dates: start: 20020122
  14. LOTREL [Concomitant]
     Route: 065
     Dates: start: 20010124, end: 20020125
  15. LOPRESSOR [Concomitant]
     Route: 065
     Dates: start: 20020125
  16. HYDROCODONE BITARTRATE AND ACETAMINOPHEN [Concomitant]
     Route: 065
     Dates: start: 20011211
  17. BACLOFEN [Concomitant]
     Route: 065
     Dates: start: 20011217
  18. LEVAQUIN [Concomitant]
     Route: 065
     Dates: start: 20020104
  19. LEVAQUIN [Concomitant]
     Route: 065
     Dates: start: 20011114
  20. PALGIC D [Concomitant]
     Route: 065
     Dates: start: 20020104
  21. [THERAPY UNSPECIFIED] [Concomitant]
     Route: 065
     Dates: start: 20011114
  22. DIETHYLPROPION HYDROCHLORIDE [Concomitant]
     Route: 065
     Dates: start: 20020209
  23. NAPROXEN [Concomitant]
     Route: 065
     Dates: start: 20011211
  24. CARISOPRODOL [Concomitant]
     Route: 065
     Dates: start: 20011211
  25. METOPROLOL [Concomitant]
     Route: 065
     Dates: start: 20020125

REACTIONS (35)
  - ABDOMINAL PAIN UPPER [None]
  - ANGINA PECTORIS [None]
  - ASTHENIA [None]
  - BLOOD CHOLESTEROL INCREASED [None]
  - BLOOD CREATININE INCREASED [None]
  - BRONCHITIS [None]
  - CARDIAC FAILURE CONGESTIVE [None]
  - CONGESTIVE CARDIOMYOPATHY [None]
  - CONTUSION [None]
  - COUGH [None]
  - DEPRESSION [None]
  - DIZZINESS [None]
  - DYSPEPSIA [None]
  - EMOTIONAL DISTRESS [None]
  - ERECTILE DYSFUNCTION [None]
  - FACIAL PALSY [None]
  - FALL [None]
  - GASTROENTERITIS VIRAL [None]
  - GASTROOESOPHAGEAL REFLUX DISEASE [None]
  - HAEMOGLOBIN DECREASED [None]
  - HYPERTENSION [None]
  - INSOMNIA [None]
  - NASAL CONGESTION [None]
  - NECK INJURY [None]
  - PAIN [None]
  - RETCHING [None]
  - RHINORRHOEA [None]
  - ROAD TRAFFIC ACCIDENT [None]
  - SINUS BRADYCARDIA [None]
  - SINUSITIS [None]
  - SLEEP APNOEA SYNDROME [None]
  - SUPRAVENTRICULAR EXTRASYSTOLES [None]
  - SWELLING [None]
  - UPPER RESPIRATORY TRACT INFECTION [None]
  - VENTRICULAR EXTRASYSTOLES [None]
